FAERS Safety Report 20060967 (Version 1)
Quarter: 2021Q4

REPORT INFORMATION
  Report Type: Spontaneous
  Country: US (occurrence: US)
  Receive Date: 20211112
  Receipt Date: 20211112
  Transmission Date: 20220303
  Serious: No
  Sender: FDA-Public Use
  Company Number: US-BIOGEN-2018BI00632160

PATIENT
  Sex: Female

DRUGS (3)
  1. TYSABRI [Suspect]
     Active Substance: NATALIZUMAB
     Indication: Multiple sclerosis
     Route: 050
     Dates: start: 20080521, end: 20161028
  2. TYSABRI [Suspect]
     Active Substance: NATALIZUMAB
     Route: 050
     Dates: start: 20170302
  3. TYSABRI [Suspect]
     Active Substance: NATALIZUMAB
     Dosage: STARTING ON OCTOBER DUE TO JCV RESULTS
     Route: 050

REACTIONS (2)
  - Prescribed underdose [Recovered/Resolved]
  - Multiple sclerosis [Unknown]
